FAERS Safety Report 13033424 (Version 1)
Quarter: 2016Q4

REPORT INFORMATION
  Report Type: Report from Study
  Country: None (occurrence: GB)
  Receive Date: 20161216
  Receipt Date: 20161216
  Transmission Date: 20170207
  Serious: Yes (Hospitalization, Other)
  Sender: FDA-Public Use
  Company Number: GB-ABBVIE-16K-167-1805083-00

PATIENT
  Sex: Male

DRUGS (1)
  1. HUMIRA [Suspect]
     Active Substance: ADALIMUMAB
     Indication: ANKYLOSING SPONDYLITIS
     Route: 058
     Dates: start: 20140123

REACTIONS (4)
  - Malaise [Recovering/Resolving]
  - Procedural complication [Recovering/Resolving]
  - Gastrointestinal toxicity [Recovering/Resolving]
  - Intestinal operation [Recovering/Resolving]

NARRATIVE: CASE EVENT DATE: 2016
